FAERS Safety Report 7553748-4 (Version None)
Quarter: 2011Q2

REPORT INFORMATION
  Report Type: 
  Country: None (occurrence: None)
  Receive Date: 20110614
  Receipt Date: 20110614
  Transmission Date: 20111010
  Serious: Yes (Hospitalization)
  Sender: FDA-Public Use
  Company Number: None

PATIENT
  Age: 61 Year
  Sex: Female
  Weight: 58.0604 kg

DRUGS (2)
  1. NIASPAN [Suspect]
     Indication: BLOOD CHOLESTEROL INCREASED
     Dosage: 1 TABLET AT BEDTIME
     Dates: start: 20110609, end: 20110610
  2. NIASPAN [Suspect]
     Indication: FACTOR V LEIDEN MUTATION
     Dosage: 1 TABLET AT BEDTIME
     Dates: start: 20110609, end: 20110610

REACTIONS (12)
  - FEAR [None]
  - FLUSHING [None]
  - LACERATION [None]
  - PRESYNCOPE [None]
  - PAIN [None]
  - MUSCULOSKELETAL CHEST PAIN [None]
  - FALL [None]
  - FEELING ABNORMAL [None]
  - BLOOD PRESSURE DECREASED [None]
  - VISION BLURRED [None]
  - HEAD INJURY [None]
  - CONTUSION [None]
